FAERS Safety Report 25887473 (Version 2)
Quarter: 2025Q4

REPORT INFORMATION
  Report Type: Report from Study
  Country: US (occurrence: US)
  Receive Date: 20251007
  Receipt Date: 20251010
  Transmission Date: 20260117
  Serious: Yes (Other)
  Sender: ABBVIE
  Company Number: US-ABBVIE-5985293

PATIENT
  Age: 71 Year
  Sex: Female

DRUGS (2)
  1. SKYRIZI [Suspect]
     Active Substance: RISANKIZUMAB-RZAA
     Indication: Crohn^s disease
     Dosage: DOSE FORM: SOLUTION FOR INJECTION IN NEEDLE-FREE INJECTOR?FORM STRENGTH: 360 MILLIGRAM
     Route: 058
     Dates: start: 20231009, end: 202502
  2. SKYRIZI [Suspect]
     Active Substance: RISANKIZUMAB-RZAA
     Dosage: DOSE FORM: SOLUTION FOR INJECTION IN NEEDLE-FREE INJECTOR?FORM STRENGTH: 360 MILLIGRAM
     Route: 058
     Dates: start: 202502

REACTIONS (8)
  - Systemic lupus erythematosus [Not Recovered/Not Resolved]
  - Carpal tunnel syndrome [Unknown]
  - Crohn^s disease [Not Recovered/Not Resolved]
  - Pain [Unknown]
  - Oesophageal food impaction [Unknown]
  - Investigation abnormal [Not Recovered/Not Resolved]
  - Gastrooesophageal reflux disease [Not Recovered/Not Resolved]
  - Drug ineffective [Not Recovered/Not Resolved]

NARRATIVE: CASE EVENT DATE: 20250801
